FAERS Safety Report 25612340 (Version 6)
Quarter: 2025Q4

REPORT INFORMATION
  Report Type: Report from Study
  Country: CA (occurrence: CA)
  Receive Date: 20250728
  Receipt Date: 20251212
  Transmission Date: 20260119
  Serious: Yes (Hospitalization)
  Sender: PFIZER
  Company Number: CA-PFIZER INC-202500124384

PATIENT
  Age: 74 Year
  Sex: Female
  Weight: 68 kg

DRUGS (10)
  1. IXIFI [Suspect]
     Active Substance: INFLIXIMAB-QBTX
     Indication: Colitis ulcerative
     Dosage: 5 MG/KG, AT WEEK 0,2 AND 6 THEN EVERY 8 WEEKS
     Route: 042
     Dates: start: 20250610
  2. IXIFI [Suspect]
     Active Substance: INFLIXIMAB-QBTX
     Dosage: 340 MG, AFTER 3 WEEKS AND 5 DAYS (WEEK 6)
     Route: 042
     Dates: start: 20250722
  3. IXIFI [Suspect]
     Active Substance: INFLIXIMAB-QBTX
     Dosage: 340 MG, AT 8 WEEKS
     Route: 042
     Dates: start: 20250917
  4. IXIFI [Suspect]
     Active Substance: INFLIXIMAB-QBTX
     Dosage: 310 MG (5 MG/KG, AT WEEK 0,2 AND 6 THEN EVERY 8 WEEKS)
     Route: 042
     Dates: start: 20251112
  5. BUDESONIDE [Concomitant]
     Active Substance: BUDESONIDE
     Dosage: UNK
  6. ACETAMINOPHEN\OXYCODONE HYDROCHLORIDE [Concomitant]
     Active Substance: ACETAMINOPHEN\OXYCODONE HYDROCHLORIDE
     Dosage: UNK
  7. PREDNISONE [Concomitant]
     Active Substance: PREDNISONE
     Dosage: UNK
  8. QUETIAPINE [Concomitant]
     Active Substance: QUETIAPINE
     Dosage: UNK
  9. RABEPRAZOLE [Concomitant]
     Active Substance: RABEPRAZOLE
     Dosage: UNK
  10. REMICADE [Concomitant]
     Active Substance: INFLIXIMAB
     Indication: Colitis ulcerative
     Dosage: UNK
     Dates: start: 20250626

REACTIONS (2)
  - Oedema peripheral [Unknown]
  - Condition aggravated [Not Recovered/Not Resolved]

NARRATIVE: CASE EVENT DATE: 20250722
